FAERS Safety Report 9562466 (Version 2)
Quarter: 2013Q3

REPORT INFORMATION
  Report Type: Spontaneous
  Country: JP (occurrence: JP)
  Receive Date: 20130927
  Receipt Date: 20130927
  Transmission Date: 20140515
  Serious: Yes (Death)
  Sender: FDA-Public Use
  Company Number: JP-GLAXOSMITHKLINE-B0924417A

PATIENT
  Sex: Female

DRUGS (1)
  1. ZANAMIVIR [Suspect]
     Indication: ANTIVIRAL PROPHYLAXIS
     Dosage: 10MG PER DAY
     Route: 055

REACTIONS (6)
  - Anaphylactic reaction [Unknown]
  - Death [Fatal]
  - Muscle rigidity [Unknown]
  - Eyelid disorder [Unknown]
  - Pulse absent [Unknown]
  - Dyspnoea [Unknown]
